FAERS Safety Report 7591835-5 (Version None)
Quarter: 2011Q3

REPORT INFORMATION
  Report Type: 
  Country: None (occurrence: None)
  Receive Date: 20110701
  Receipt Date: 20110701
  Transmission Date: 20111222
  Serious: No
  Sender: FDA-Public Use
  Company Number: None

PATIENT
  Age: 56 Year
  Sex: Female
  Weight: 70.3075 kg

DRUGS (3)
  1. PRAVASTATIN [Suspect]
     Indication: BLOOD CHOLESTEROL INCREASED
     Dosage: 20MG 1/DAY PO
     Route: 048
     Dates: start: 20090101, end: 20110101
  2. ZOCOR [Concomitant]
  3. LIPITOR [Concomitant]

REACTIONS (1)
  - MUSCLE INJURY [None]
